FAERS Safety Report 7577433-8 (Version None)
Quarter: 2011Q2

REPORT INFORMATION
  Report Type: 
  Country: None (occurrence: None)
  Receive Date: 20110628
  Receipt Date: 20110620
  Transmission Date: 20111010
  Serious: Yes (Death, Hospitalization, Other)
  Sender: FDA-Public Use
  Company Number: IN-SANOFI-AVENTIS-2011SA039216

PATIENT

DRUGS (7)
  1. PIPERACILLIN [Suspect]
     Route: 065
  2. AMIODARONE HYDROCHLORIDE [Suspect]
     Route: 065
  3. DIGOXIN [Suspect]
     Route: 065
  4. METRONIDAZOLE [Suspect]
     Route: 065
  5. THEOPHYLLINE [Suspect]
     Route: 065
  6. CEFTRIAXONE [Suspect]
     Route: 065
  7. AMPICILLIN SODIUM [Suspect]
     Route: 065

REACTIONS (4)
  - BRADYCARDIA [None]
  - HYPOTHYROIDISM [None]
  - CARDIAC ARREST [None]
  - DERMATITIS ALLERGIC [None]
